FAERS Safety Report 10143693 (Version 2)
Quarter: 2014Q2

REPORT INFORMATION
  Report Type: Spontaneous
  Country: US (occurrence: US)
  Receive Date: 20140430
  Receipt Date: 20140609
  Transmission Date: 20141212
  Serious: No
  Sender: FDA-Public Use
  Company Number: US-PFIZER INC-2014118875

PATIENT
  Age: 85 Year
  Sex: Female
  Weight: 49.89 kg

DRUGS (3)
  1. CELEBREX [Suspect]
     Indication: PAIN
     Dosage: 500 MG, 2X/DAY
     Dates: start: 1995
  2. CELEBREX [Suspect]
     Indication: RHEUMATOID ARTHRITIS
     Dosage: 400 MG, 2X/DAY
     Dates: end: 2014
  3. PREMARIN [Concomitant]
     Dosage: UNK
     Dates: end: 2014

REACTIONS (1)
  - Pain [Unknown]
